FAERS Safety Report 8014694-5 (Version None)
Quarter: 2011Q4

REPORT INFORMATION
  Report Type: 
  Country: None (occurrence: None)
  Receive Date: 20111229
  Receipt Date: 20111123
  Transmission Date: 20120403
  Serious: Yes (Other)
  Sender: FDA-Public Use
  Company Number: PHFR2011GB006748

PATIENT
  Sex: Female

DRUGS (1)
  1. CLOZARIL [Suspect]
     Indication: SCHIZOPHRENIA
     Route: 048
     Dates: start: 20111102

REACTIONS (7)
  - EXTRAPYRAMIDAL DISORDER [None]
  - LETHARGY [None]
  - POSTURE ABNORMAL [None]
  - GAIT DISTURBANCE [None]
  - FALL [None]
  - FATIGUE [None]
  - MALAISE [None]
